FAERS Safety Report 25642376 (Version 3)
Quarter: 2025Q3

REPORT INFORMATION
  Report Type: Spontaneous
  Country: EU (occurrence: EU)
  Receive Date: 20250805
  Receipt Date: 20250910
  Transmission Date: 20251021
  Serious: Yes (Disabling, Congenital Anomaly)
  Sender: MERCK SHARP & DOHME LLC
  Company Number: EU-009507513-2316107

PATIENT
  Sex: Female
  Weight: 1.685 kg

DRUGS (3)
  1. PEMBROLIZUMAB [Suspect]
     Active Substance: PEMBROLIZUMAB
     Indication: Adenocarcinoma gastric
     Dosage: STOP DATE: 32 WEEKS OF GESTATION
     Route: 064
     Dates: start: 202301
  2. LEVOTHYROXINE [Concomitant]
     Active Substance: LEVOTHYROXINE
     Indication: Hypothyroidism
     Route: 064
  3. ENOXAPARIN [Concomitant]
     Active Substance: ENOXAPARIN
     Indication: Immune thrombocytopenia
     Route: 064

REACTIONS (4)
  - Neonatal diabetes mellitus [Not Recovered/Not Resolved]
  - Necrotising colitis [Recovered/Resolved with Sequelae]
  - Foetal exposure during pregnancy [Recovered/Resolved]
  - Pancreatic failure [Recovered/Resolved with Sequelae]

NARRATIVE: CASE EVENT DATE: 20231201
